FAERS Safety Report 24002049 (Version 1)
Quarter: 2024Q2

REPORT INFORMATION
  Report Type: Spontaneous
  Country: US (occurrence: US)
  Receive Date: 20240622
  Receipt Date: 20240622
  Transmission Date: 20240716
  Serious: Yes (Life-Threatening, Hospitalization, Other)
  Sender: FDA-Public Use
  Company Number: US-AUROBINDO-AUR-APL-2024-030003

PATIENT
  Age: 55 Year
  Sex: Female

DRUGS (8)
  1. CARBOPLATIN [Suspect]
     Active Substance: CARBOPLATIN
     Indication: Triple negative breast cancer
     Dosage: 11 CYCLES
     Route: 065
  2. CYCLOPHOSPHAMIDE [Suspect]
     Active Substance: CYCLOPHOSPHAMIDE
     Indication: Triple negative breast cancer
     Dosage: 11 CYCLES
     Route: 065
  3. DOXORUBICIN [Suspect]
     Active Substance: DOXORUBICIN
     Indication: Triple negative breast cancer
     Dosage: 11 CYCLES
     Route: 065
  4. PACLITAXEL [Suspect]
     Active Substance: PACLITAXEL
     Indication: Triple negative breast cancer
     Dosage: 11 CYCLES
     Route: 065
  5. PEMBROLIZUMAB [Suspect]
     Active Substance: PEMBROLIZUMAB
     Indication: Triple negative breast cancer
     Dosage: FOUR CYCLES
     Route: 065
  6. BICTEGRAVIR [Concomitant]
     Active Substance: BICTEGRAVIR
     Indication: HIV infection
     Dosage: UNK
     Route: 065
  7. EMTRICITABINE [Concomitant]
     Active Substance: EMTRICITABINE
     Indication: HIV infection
     Dosage: UNK
     Route: 065
  8. TENOFOVIR ALAFENAMIDE [Concomitant]
     Active Substance: TENOFOVIR ALAFENAMIDE
     Indication: HIV infection
     Dosage: UNK
     Route: 065

REACTIONS (2)
  - Febrile neutropenia [Unknown]
  - Neuropathy peripheral [Unknown]
